FAERS Safety Report 8336968 (Version 2)
Quarter: 2013Q2

REPORT INFORMATION
  Report Type: Spontaneous
  Country: US (occurrence: None)
  Receive Date: 20111130
  Receipt Date: 20120531
  Transmission Date: 20140414
  Serious: Yes (Other)
  Sender: FDA-Public Use
  Company Number: US201107006527

PATIENT
  Sex: Female
  Weight: 83.9 kg

DRUGS (9)
  1. FUROSEMIDE (FUROSEMIDE) [Concomitant]
  2. LOTREL (AMLODIPINE BESILATE, BENAZEPRIL HYDROCHLORIDE) [Concomitant]
  3. METFORMIN HCL [Concomitant]
  4. MICRO-K (POTASSIUM CHLORIDE) [Concomitant]
  5. VYTORIN (EZETIMIBE, SIMVASTATIN) [Concomitant]
  6. LANTUS (INSULIN GLARGINE) [Concomitant]
  7. PROCRIT (EPOETIN ALFA) [Concomitant]
  8. BYETTA [Suspect]
     Indication: PRODUCT USED FOR UNKNOWN INDICATION
     Dosage: UNK, SUBCUTANEOUS
     Route: 058
     Dates: start: 200505
  9. AMARYL (GLIMEPIRIDE) [Concomitant]

REACTIONS (2)
  - RENAL FAILURE CHRONIC [None]
  - PANCREATITIS [None]
